FAERS Safety Report 10133527 (Version 1)
Quarter: 2014Q2

REPORT INFORMATION
  Report Type: Spontaneous
  Country: IT (occurrence: IT)
  Receive Date: 20140428
  Receipt Date: 20140428
  Transmission Date: 20141212
  Serious: Yes (Other)
  Sender: FDA-Public Use
  Company Number: IT-WATSON-2014-08088

PATIENT
  Age: 17 Year
  Sex: Male
  Weight: 58 kg

DRUGS (2)
  1. VALPROIC ACID (UNKNOWN) [Suspect]
     Indication: EPILEPSY
     Dosage: 500 MG, BID; EVERY 12 HOURS
     Route: 065
     Dates: start: 20110216, end: 20110222
  2. VALPROIC ACID (UNKNOWN) [Suspect]
     Dosage: 1500 MG, DAILY (25.8 MG/KG/DAY)- 1000 MG IN THE MORNING ABND 500 IN THE EVENING
     Route: 065
     Dates: start: 20110223

REACTIONS (1)
  - Tremor [Recovered/Resolved]
